FAERS Safety Report 14684852 (Version 1)
Quarter: 2018Q1

REPORT INFORMATION
  Report Type: Spontaneous
  Country: NL (occurrence: NL)
  Receive Date: 20180327
  Receipt Date: 20180327
  Transmission Date: 20180509
  Serious: Yes (Other)
  Sender: FDA-Public Use
  Company Number: NL-TEVA-2018-NL-875144

PATIENT
  Age: 91 Year
  Sex: Female

DRUGS (5)
  1. VIDISIC EDO OOGGEL 0.6 ML [Concomitant]
     Dosage: IF NECESSARY, 1 DROP IN LEFT EYE
  2. MACROGOL/ELEKTRO PDR VOOR DRANK [Concomitant]
     Dosage: 1 DOSAGE FORMS DAILY; 1 DD 1
  3. LOSARTAN FILMOMHULDE TABLET, 50 MG (MILLIGRAM) [Suspect]
     Active Substance: LOSARTAN
     Indication: HYPERTENSION
     Dosage: 50 MILLIGRAM DAILY; 1 X PER DAG 1 TABLET
  4. HYDROCHLOORTHIAZIDE T12,5 MG [Concomitant]
     Dosage: 12.5 MILLIGRAM DAILY; 1 DD 1
  5. NUTROF OMEGA VOEDINGSSUPP C [Concomitant]
     Dosage: 1 DOSAGE FORMS DAILY; 1 DD 1

REACTIONS (2)
  - Macular oedema [Not Recovered/Not Resolved]
  - Condition aggravated [Not Recovered/Not Resolved]
